FAERS Safety Report 4941950-7 (Version None)
Quarter: 2006Q1

REPORT INFORMATION
  Report Type: 
  Country: None (occurrence: None)
  Receive Date: 20060313
  Receipt Date: 20060302
  Transmission Date: 20060701
  Serious: Yes (Hospitalization)
  Sender: FDA-Public Use
  Company Number: US-MERCK-0603USA00624

PATIENT
  Age: 34 Year
  Sex: Female
  Weight: 83 kg

DRUGS (14)
  1. FLEXERIL [Concomitant]
     Indication: MYALGIA
     Route: 048
     Dates: start: 19950101, end: 20040101
  2. VIOXX [Suspect]
     Indication: ARTHRITIS
     Route: 048
     Dates: start: 20020207, end: 20020501
  3. VIOXX [Suspect]
     Route: 048
     Dates: start: 20020207, end: 20020501
  4. HYDROCHLOROTHIAZIDE [Concomitant]
     Indication: HYPERTENSION
     Route: 048
     Dates: start: 20000101
  5. HYDROCHLOROTHIAZIDE [Concomitant]
     Indication: OEDEMA
     Route: 048
     Dates: start: 20000101
  6. PROPOXYPHENE NAPSYLATE [Concomitant]
     Indication: PAIN
     Route: 048
     Dates: start: 20010101, end: 20040101
  7. ALPRAZOLAM [Concomitant]
     Indication: ANXIETY
     Route: 065
  8. FLONASE [Concomitant]
     Indication: HYPERSENSITIVITY
     Route: 055
  9. BUTALBITAL [Concomitant]
     Indication: PAIN
     Route: 065
  10. ZYRTEC [Concomitant]
     Indication: ABDOMINAL PAIN UPPER
     Route: 048
  11. REMERON [Concomitant]
     Indication: DEPRESSION
     Route: 048
  12. SYNTHROID [Concomitant]
     Indication: THYROID DISORDER
     Route: 048
     Dates: start: 20000601
  13. ADVAIR DISKUS 100/50 [Concomitant]
     Indication: ASTHMA
     Route: 055
  14. PAXIL [Concomitant]
     Indication: PANIC DISORDER
     Route: 048

REACTIONS (2)
  - CEREBROVASCULAR ACCIDENT [None]
  - THYROID DISORDER [None]
